FAERS Safety Report 6577028-9 (Version None)
Quarter: 2010Q1

REPORT INFORMATION
  Report Type: 
  Country: None (occurrence: None)
  Receive Date: 20100210
  Receipt Date: 20100127
  Transmission Date: 20100710
  Serious: Yes (Life-Threatening)
  Sender: FDA-Public Use
  Company Number: DE-MYLANLABS-2009S1005391

PATIENT
  Age: 85 Year
  Sex: Female
  Weight: 70 kg

DRUGS (11)
  1. CARVEDILOL [Interacting]
     Indication: CARDIAC FAILURE
     Route: 048
     Dates: start: 20081107, end: 20081214
  2. ENALAPRIL MALEATE [Suspect]
     Indication: CARDIAC FAILURE
     Route: 048
     Dates: start: 20081107, end: 20081214
  3. NOVONORM [Interacting]
     Indication: TYPE 2 DIABETES MELLITUS
     Route: 048
     Dates: start: 20000101, end: 20081214
  4. NOVOMIX [Interacting]
     Indication: TYPE 2 DIABETES MELLITUS
     Dosage: DOSIS/APPLIKATION: 26-12-16 IU
     Route: 058
     Dates: start: 20000101, end: 20081214
  5. LANTUS [Interacting]
     Indication: TYPE 2 DIABETES MELLITUS
     Dosage: ZUR NACHT
     Route: 058
     Dates: start: 20000101
  6. DIGITOXIN [Concomitant]
     Indication: CARDIAC FAILURE
     Route: 048
     Dates: start: 19900101
  7. L-THYROXINE /00068001/ [Concomitant]
     Indication: HYPOTHYROIDISM
     Route: 048
     Dates: start: 19900101
  8. TORSEMIDE [Concomitant]
     Indication: HYPERTENSION
     Dosage: DOSIS/APPLIKATION: 20-10-10MG
     Route: 048
     Dates: start: 20020101
  9. SPIRONOLACTONE [Concomitant]
     Indication: CARDIAC FAILURE
     Route: 048
     Dates: start: 20081101, end: 20081214
  10. OMEPRAZOLE [Concomitant]
     Indication: PROPHYLAXIS AGAINST GASTROINTESTINAL ULCER
     Route: 048
     Dates: start: 20060101
  11. ALLOPURINOL [Concomitant]
     Indication: HYPERURICAEMIA
     Route: 048
     Dates: start: 20081107, end: 20090105

REACTIONS (2)
  - DRUG INTERACTION [None]
  - HYPOGLYCAEMIA [None]
